FAERS Safety Report 16145872 (Version 1)
Quarter: 2019Q2

REPORT INFORMATION
  Report Type: Spontaneous
  Country: US (occurrence: US)
  Receive Date: 20190227
  Receipt Date: 20190227
  Transmission Date: 20190711
  Serious: Yes (Other)
  Sender: FDA-Public Use
  Company Number: None

PATIENT
  Age: 61 Year
  Sex: Female
  Weight: 63.5 kg

DRUGS (3)
  1. CIPROFLOXACIN HCL 500MG [Suspect]
     Active Substance: CIPROFLOXACIN HYDROCHLORIDE
     Indication: DIVERTICULITIS
     Dosage: ?          QUANTITY:1 PILL;?
     Route: 048
     Dates: start: 20181029, end: 20181103
  2. FLAGEL (METRONIDAZOLE) [Concomitant]
  3. VITAMINS [Concomitant]
     Active Substance: VITAMINS

REACTIONS (7)
  - Tinnitus [None]
  - Fatigue [None]
  - Feeling abnormal [None]
  - Pruritus [None]
  - Dyskinesia [None]
  - Muscular weakness [None]
  - Depressed mood [None]

NARRATIVE: CASE EVENT DATE: 20181127
